FAERS Safety Report 6882620-8 (Version None)
Quarter: 2010Q3

REPORT INFORMATION
  Report Type: 
  Country: None (occurrence: None)
  Receive Date: 20100701
  Receipt Date: 20090602
  Transmission Date: 20110219
  Serious: Yes (Hospitalization)
  Sender: FDA-Public Use
  Company Number: 09-ADE-SE-0015-ACT

PATIENT
  Age: 3 Year
  Sex: Male
  Weight: 13.6079 kg

DRUGS (1)
  1. H P ACTHAR [Suspect]
     Indication: INFANTILE SPASMS
     Dosage: 40 IU IM BID WITH TAPER
     Dates: start: 20081022, end: 20090131

REACTIONS (5)
  - HYPERTENSION [None]
  - KYPHOSIS [None]
  - MUSCULAR WEAKNESS [None]
  - OSTEOPOROSIS [None]
  - SPINAL COMPRESSION FRACTURE [None]
